FAERS Safety Report 7437700-5 (Version None)
Quarter: 2011Q2

REPORT INFORMATION
  Report Type: 
  Country: None (occurrence: None)
  Receive Date: 20110426
  Receipt Date: 20110418
  Transmission Date: 20111010
  Serious: Yes (Death)
  Sender: FDA-Public Use
  Company Number: DK-ROCHE-771814

PATIENT

DRUGS (4)
  1. FLUNITRAZEPAM [Suspect]
     Route: 065
  2. CLONAZEPAM [Suspect]
     Route: 065
  3. DIAZEPAM [Suspect]
     Route: 065
  4. BROMAZEPAM [Suspect]
     Route: 065

REACTIONS (1)
  - POISONING [None]
